FAERS Safety Report 15611684 (Version 1)
Quarter: 2018Q4

REPORT INFORMATION
  Report Type: Report from Study
  Country: CN (occurrence: CN)
  Receive Date: 20181113
  Receipt Date: 20181113
  Transmission Date: 20190205
  Serious: Yes (Other)
  Sender: FDA-Public Use
  Company Number: CN-ROCHE-2208582

PATIENT

DRUGS (5)
  1. PEMETREXED. [Suspect]
     Active Substance: PEMETREXED
     Indication: NON-SMALL CELL LUNG CANCER
     Dosage: ON DAY 1
     Route: 065
  2. BEVACIZUMAB. [Suspect]
     Active Substance: BEVACIZUMAB
     Indication: NON-SMALL CELL LUNG CANCER
     Dosage: 7.5 OR 15MG/KG ON DAY 1
     Route: 042
  3. CISPLATIN. [Suspect]
     Active Substance: CISPLATIN
     Indication: NON-SMALL CELL LUNG CANCER
     Dosage: ON DAY 1
     Route: 065
  4. CARBOPLATIN. [Suspect]
     Active Substance: CARBOPLATIN
     Indication: NON-SMALL CELL LUNG CANCER
     Dosage: AUC 5 ON DAY 1
     Route: 065
  5. PACLITAXEL. [Suspect]
     Active Substance: PACLITAXEL
     Indication: NON-SMALL CELL LUNG CANCER
     Dosage: ON DAY 1
     Route: 065

REACTIONS (13)
  - Asthenia [Unknown]
  - Neuropathy peripheral [Unknown]
  - Proteinuria [Unknown]
  - Vomiting [Unknown]
  - Embolism [Unknown]
  - Gastrointestinal perforation [Unknown]
  - Neutropenia [Unknown]
  - Alanine aminotransferase increased [Unknown]
  - Haemorrhage [Unknown]
  - Aspartate aminotransferase increased [Unknown]
  - Thrombocytopenia [Unknown]
  - Anaemia [Unknown]
  - Diarrhoea [Unknown]
